FAERS Safety Report 5397698-0 (Version None)
Quarter: 2007Q3

REPORT INFORMATION
  Report Type: 
  Country: None (occurrence: None)
  Receive Date: 20070723
  Receipt Date: 20070723
  Transmission Date: 20080115
  Serious: Yes (Hospitalization)
  Sender: FDA-Public Use
  Company Number: None

PATIENT
  Age: 78 Year
  Sex: Male
  Weight: 71.66 kg

DRUGS (3)
  1. DILAUDID [Suspect]
     Indication: PAIN MANAGEMENT
     Dosage: 1MG  EVERY 2 HOURS PRN  IV BOLUS
     Route: 040
     Dates: start: 20070717, end: 20070718
  2. DILAUDID [Suspect]
     Indication: PROCEDURAL PAIN
     Dosage: 1MG  EVERY 2 HOURS PRN  IV BOLUS
     Route: 040
     Dates: start: 20070717, end: 20070718
  3. PHENERGAN HCL [Suspect]

REACTIONS (1)
  - BLOOD PRESSURE DECREASED [None]
